FAERS Safety Report 9178998 (Version 1)
Quarter: 2012Q4

REPORT INFORMATION
  Report Type: 
  Country: US (occurrence: US)
  Receive Date: 20121029
  Receipt Date: 20121029
  Transmission Date: 20130627
  Serious: No
  Sender: FDA-Public Use
  Company Number: US-AMGEN-USASP2012054911

PATIENT
  Age: 61 Year
  Sex: Female

DRUGS (6)
  1. ENBREL [Suspect]
     Indication: RHEUMATOID ARTHRITIS
     Dosage: 50 mg, qwk
     Route: 058
     Dates: start: 20120623
  2. CALCIUM + VITAMIN D [Concomitant]
     Dosage: UNK
  3. FISH OIL CONCENTRATE [Concomitant]
     Dosage: UNK
  4. MAGNESIUM [Concomitant]
     Dosage: 250 mg, UNK
  5. CENTRUM                            /02217401/ [Concomitant]
     Dosage: UNK
  6. VITAMIN D /00107901/ [Concomitant]
     Dosage: 1000 unit, UNK

REACTIONS (1)
  - Injection site pain [Not Recovered/Not Resolved]
